FAERS Safety Report 6031002-X (Version None)
Quarter: 2009Q1

REPORT INFORMATION
  Report Type: 
  Country: None (occurrence: None)
  Receive Date: 20090106
  Receipt Date: 20090106
  Transmission Date: 20090719
  Serious: Yes (Hospitalization)
  Sender: FDA-Public Use
  Company Number: None

PATIENT
  Age: 26 Year
  Sex: Male
  Weight: 83.9154 kg

DRUGS (1)
  1. CEFEPIME [Suspect]
     Indication: PELVIC INFLAMMATORY DISEASE
     Dosage: 2 GMS EVERY 12 HOURS IV
     Route: 042
     Dates: start: 20081217, end: 20081217

REACTIONS (2)
  - PALPITATIONS [None]
  - RASH [None]
